FAERS Safety Report 21620812 (Version 1)
Quarter: 2022Q4

REPORT INFORMATION
  Report Type: Spontaneous
  Country: US (occurrence: None)
  Receive Date: 20221118
  Receipt Date: 20221118
  Transmission Date: 20230113
  Serious: Yes (Hospitalization)
  Sender: FDA-Public Use
  Company Number: None

PATIENT
  Age: 72 Year
  Sex: Female

DRUGS (1)
  1. GILENYA [Suspect]
     Active Substance: FINGOLIMOD HYDROCHLORIDE
     Indication: Multiple sclerosis
     Dosage: OTHER QUANTITY : 0.5MG;?FREQUENCY : DAILY;?
     Route: 048
     Dates: start: 20220307

REACTIONS (6)
  - Myocardial infarction [None]
  - Seizure [None]
  - Headache [None]
  - Influenza [None]
  - Hypoaesthesia [None]
  - Hysterectomy [None]

NARRATIVE: CASE EVENT DATE: 20221026
